FAERS Safety Report 25015512 (Version 2)
Quarter: 2025Q2

REPORT INFORMATION
  Report Type: Spontaneous
  Country: NO (occurrence: NO)
  Receive Date: 20250227
  Receipt Date: 20250407
  Transmission Date: 20250717
  Serious: Yes (Other)
  Sender: MERCK SHARP AND DOHME
  Company Number: NO-009507513-2258233

PATIENT
  Age: 3 Decade
  Sex: Male

DRUGS (3)
  1. TEMOZOLOMIDE [Suspect]
     Active Substance: TEMOZOLOMIDE
     Indication: Astrocytoma malignant
     Route: 048
  2. ONDANSETRON [Concomitant]
     Active Substance: ONDANSETRON
     Indication: Prophylaxis of nausea and vomiting
  3. LEVETIRACETAM [Concomitant]
     Active Substance: LEVETIRACETAM
     Indication: Epilepsy

REACTIONS (2)
  - Tumour pseudoprogression [Recovered/Resolved]
  - Product use in unapproved indication [Unknown]
